FAERS Safety Report 9386849 (Version 2)
Quarter: 2013Q3

REPORT INFORMATION
  Report Type: Spontaneous
  Country: DE (occurrence: None)
  Receive Date: 20130702
  Receipt Date: 20130822
  Transmission Date: 20140515
  Serious: Yes (Other)
  Sender: FDA-Public Use
  Company Number: 1306-842

PATIENT
  Age: 81 Year
  Sex: Male

DRUGS (7)
  1. EYLEA [Suspect]
     Indication: AGE-RELATED MACULAR DEGENERATION
     Dosage: 2 MG, PRN, INTRAVITREAL
     Dates: start: 20130617
  2. LUCENTIS (RANIBIZUMAB) [Concomitant]
  3. VISCOTEARS (CARBOMER) [Concomitant]
  4. PRED FORTE (PREDNISOLONE ACETATE) [Concomitant]
  5. VIGAMOX (MOXIFLOXACIN HYDROCHLORIDE) [Concomitant]
  6. OCTENISEPT (OCTENISEPT) [Concomitant]
  7. OCUVITE (OCUVITE) [Concomitant]

REACTIONS (2)
  - Pseudoendophthalmitis [None]
  - Blindness [None]
